FAERS Safety Report 4580472-2 (Version None)
Quarter: 2005Q1

REPORT INFORMATION
  Report Type: 
  Country: None (occurrence: None)
  Receive Date: 20050214
  Receipt Date: 20040127
  Transmission Date: 20050727
  Serious: No
  Sender: FDA-Public Use
  Company Number: US-GLAXOSMITHKLINE-A0496464A

PATIENT

DRUGS (1)
  1. LAMICTAL [Suspect]
     Indication: ILL-DEFINED DISORDER
     Route: 048

REACTIONS (1)
  - PULMONARY CONGESTION [None]
